FAERS Safety Report 4675855-6 (Version None)
Quarter: 2005Q2

REPORT INFORMATION
  Report Type: 
  Country: None (occurrence: None)
  Receive Date: 20050525
  Receipt Date: 20050516
  Transmission Date: 20051028
  Serious: No
  Sender: FDA-Public Use
  Company Number: USA-2005-0019997

PATIENT
  Age: 17 Year
  Sex: Female
  Weight: 55 kg

DRUGS (4)
  1. SPECTRACEF [Suspect]
     Indication: OFF LABEL USE
     Dosage: 200 MG, BID; ORAL
     Route: 048
     Dates: start: 20050331, end: 20050405
  2. BURAZIN [Concomitant]
  3. TYLOL HOT [Concomitant]
  4. SPIROGUT [Concomitant]

REACTIONS (3)
  - DERMATITIS [None]
  - RASH SCALY [None]
  - SKIN WRINKLING [None]
